FAERS Safety Report 19822785 (Version 4)
Quarter: 2021Q3

REPORT INFORMATION
  Report Type: Spontaneous
  Country: EE (occurrence: EE)
  Receive Date: 20210913
  Receipt Date: 20210930
  Transmission Date: 20211014
  Serious: Yes (Hospitalization, Other)
  Sender: FDA-Public Use
  Company Number: EE-ABBVIE-21K-221-4070217-00

PATIENT
  Age: 54 Year
  Sex: Female
  Weight: 47 kg

DRUGS (1)
  1. HUMIRA [Suspect]
     Active Substance: ADALIMUMAB
     Indication: RHEUMATOID ARTHRITIS
     Route: 058
     Dates: start: 202005, end: 202107

REACTIONS (34)
  - Borrelia infection [Unknown]
  - Hypersomnia [Unknown]
  - Malaise [Unknown]
  - Mobility decreased [Recovering/Resolving]
  - White matter lesion [Unknown]
  - Dizziness [Unknown]
  - Decreased appetite [Unknown]
  - Fall [Unknown]
  - Neoplasm malignant [Unknown]
  - Encephalomyelitis [Unknown]
  - Demyelination [Unknown]
  - Fatigue [Not Recovered/Not Resolved]
  - Neuromyelitis optica spectrum disorder [Unknown]
  - Multiple sclerosis [Unknown]
  - Plasmapheresis [Unknown]
  - Medical diet [Unknown]
  - Radiculopathy [Unknown]
  - Weight decreased [Unknown]
  - Autoimmune disorder [Unknown]
  - Restlessness [Unknown]
  - Vertigo [Unknown]
  - Somnolence [Unknown]
  - Dependent personality disorder [Unknown]
  - Magnetic resonance imaging head abnormal [Unknown]
  - Fatigue [Recovered/Resolved]
  - Dependent personality disorder [Unknown]
  - Facet joint syndrome [Unknown]
  - Nausea [Unknown]
  - Hospitalisation [Unknown]
  - Ataxia [Unknown]
  - Paranasal cyst [Unknown]
  - Vasculitis [Unknown]
  - Sarcoidosis [Unknown]
  - Unevaluable event [Unknown]

NARRATIVE: CASE EVENT DATE: 2020
